FAERS Safety Report 7360315-4 (Version None)
Quarter: 2011Q1

REPORT INFORMATION
  Report Type: 
  Country: None (occurrence: None)
  Receive Date: 20110318
  Receipt Date: 20110311
  Transmission Date: 20110831
  Serious: Yes (Other)
  Sender: FDA-Public Use
  Company Number: BR-ELI_LILLY_AND_COMPANY-BR201102004243

PATIENT
  Sex: Male

DRUGS (2)
  1. HUMULIN N [Suspect]
     Indication: DIABETES MELLITUS
     Dosage: 40 IU, EACH MORNING
     Route: 065
     Dates: start: 20060101
  2. HUMULIN N [Suspect]
     Dosage: 15 IU, EACH EVENING
     Route: 065

REACTIONS (2)
  - BLOOD GLUCOSE INCREASED [None]
  - CATARACT OPERATION [None]
